FAERS Safety Report 6437714-8 (Version None)
Quarter: 2009Q4

REPORT INFORMATION
  Report Type: 
  Country: None (occurrence: None)
  Receive Date: 20091112
  Receipt Date: 20091102
  Transmission Date: 20100525
  Serious: Yes (Hospitalization)
  Sender: FDA-Public Use
  Company Number: SE-PFIZER INC-2009264178

PATIENT
  Age: 72 Year
  Sex: Male
  Weight: 85 kg

DRUGS (16)
  1. BLINDED *NO SUBJECT DRUG [Suspect]
     Indication: PROSTATE CANCER
     Dosage: UNK
     Route: 048
     Dates: start: 20090522, end: 20090709
  2. BLINDED *PLACEBO [Suspect]
     Indication: PROSTATE CANCER
     Dosage: UNK
     Route: 048
     Dates: start: 20090522, end: 20090709
  3. BLINDED SUNITINIB MALATE [Suspect]
     Indication: PROSTATE CANCER
     Dosage: UNK
     Route: 048
     Dates: start: 20090522, end: 20090709
  4. PREDNISOLONE AND PREDNISOLONE STEAGLATE [Suspect]
     Indication: PROSTATE CANCER
     Dosage: 5 MG, 2X/DAY
     Dates: start: 20090522, end: 20090928
  5. ENALAPRIL [Concomitant]
     Indication: HYPERTENSION
     Dosage: UNK
     Dates: start: 20090201
  6. TENORMIN [Concomitant]
     Indication: HYPERTENSION
     Dosage: UNK
     Dates: start: 20020101
  7. ESTRADURIN [Concomitant]
     Indication: PROSTATE CANCER
     Dosage: UNK
     Dates: start: 20060101
  8. LEUPRORELIN [Concomitant]
     Indication: PROSTATE CANCER
     Dosage: UNK
     Dates: start: 20060101
  9. ACETAMINOPHEN W/ CODEINE [Concomitant]
     Indication: BONE PAIN
     Dosage: UNK
     Dates: start: 20081029
  10. OMEPRAZOLE [Concomitant]
     Indication: ABDOMINAL DISTENSION
     Dosage: UNK
     Dates: start: 20090126
  11. SIMVASTATIN [Concomitant]
     Indication: VISCERAL ARTERIAL ISCHAEMIA
     Dosage: UNK
     Dates: start: 20090522
  12. TROMBYL [Concomitant]
     Indication: HYPERTENSION
     Dosage: UNK
  13. OXYNORM [Concomitant]
     Indication: PROCTALGIA
     Dosage: UNK
     Dates: start: 20090709
  14. ZOLPIDEM [Concomitant]
     Indication: INSOMNIA
     Dosage: UNK
     Dates: start: 20090212
  15. XYLOPROCT [Concomitant]
     Indication: PROCTALGIA
     Dosage: UNK
     Dates: start: 20090618
  16. PARACETAMOL [Concomitant]
     Indication: PROCTALGIA
     Dosage: UNK
     Dates: start: 20090707

REACTIONS (1)
  - RECTAL ULCER [None]
